FAERS Safety Report 17175418 (Version 1)
Quarter: 2019Q4

REPORT INFORMATION
  Report Type: Other
  Country: IT (occurrence: IT)
  Receive Date: 20191219
  Receipt Date: 20191219
  Transmission Date: 20200122
  Serious: Yes (Hospitalization)
  Sender: FDA-Public Use
  Company Number: IT-CELLTRION INC.-2019IT027274

PATIENT

DRUGS (1)
  1. HERZUMA [Suspect]
     Active Substance: TRASTUZUMAB-PKRB
     Indication: BREAST CANCER
     Dosage: 520 MG, CYCLIC
     Dates: start: 20191107, end: 20191107

REACTIONS (5)
  - Hypoxia [Unknown]
  - Hypersensitivity [Unknown]
  - Hypotension [Unknown]
  - Hyperpyrexia [Unknown]
  - Chills [Unknown]

NARRATIVE: CASE EVENT DATE: 20191107
